FAERS Safety Report 20649223 (Version 1)
Quarter: 2022Q1

REPORT INFORMATION
  Report Type: Spontaneous
  Country: JP (occurrence: JP)
  Receive Date: 20220329
  Receipt Date: 20220329
  Transmission Date: 20220424
  Serious: Yes (Other)
  Sender: FDA-Public Use
  Company Number: JP-PFIZER INC-202200433829

PATIENT

DRUGS (2)
  1. INLYTA [Suspect]
     Active Substance: AXITINIB
     Dosage: UNK
  2. BAVENCIO [Suspect]
     Active Substance: AVELUMAB
     Dosage: UNK

REACTIONS (1)
  - Hypoglycaemic encephalopathy [Unknown]
